FAERS Safety Report 5369025-6 (Version None)
Quarter: 2007Q2

REPORT INFORMATION
  Report Type: 
  Country: None (occurrence: None)
  Receive Date: 20070625
  Receipt Date: 20061117
  Transmission Date: 20071010
  Serious: No
  Sender: FDA-Public Use
  Company Number: US-ASTRAZENECA-2006UW25584

PATIENT
  Age: 86 Year
  Sex: Male
  Weight: 78 kg

DRUGS (3)
  1. CRESTOR [Suspect]
     Indication: BLOOD CHOLESTEROL INCREASED
     Route: 048
  2. ENALAPRIL [Concomitant]
  3. FUROSEMIDE [Concomitant]

REACTIONS (5)
  - DIZZINESS [None]
  - FEELING ABNORMAL [None]
  - LETHARGY [None]
  - MEDICATION ERROR [None]
  - PHOBIA OF DRIVING [None]
